FAERS Safety Report 7558860-1 (Version None)
Quarter: 2011Q2

REPORT INFORMATION
  Report Type: 
  Country: None (occurrence: None)
  Receive Date: 20110613
  Receipt Date: 20110527
  Transmission Date: 20111010
  Serious: Yes (Other)
  Sender: FDA-Public Use
  Company Number: AUR-APL-2011-02319

PATIENT
  Age: 23 Year
  Sex: Female
  Weight: 48 kg

DRUGS (13)
  1. ACETAMINOPHEN [Suspect]
     Indication: INTENTIONAL SELF-INJURY
     Dosage: ORAL
     Route: 048
     Dates: start: 20110516
  2. NAPROXEN [Suspect]
     Indication: INTENTIONAL SELF-INJURY
     Dosage: ORAL
     Route: 048
     Dates: start: 20110516
  3. CETIRIZINE HCL [Suspect]
     Indication: INTENTIONAL SELF-INJURY
     Dosage: 10MG-ORAL
     Route: 048
     Dates: start: 20110516
  4. FLUCONAZOLE [Suspect]
     Dosage: 150MG
     Dates: start: 20110516
  5. FERLIXIT [Suspect]
     Indication: INTENTIONAL SELF-INJURY
     Dates: start: 20110516
  6. LEXOTAN ORAL SOLUTION [Suspect]
     Indication: INTENTIONAL SELF-INJURY
     Dosage: 0.25%
     Dates: start: 20110516
  7. VERMOX [Suspect]
     Dosage: 500MG-ORAL
     Route: 048
     Dates: start: 20110516
  8. VOLTAREN [Suspect]
     Dosage: ORAL
     Route: 048
     Dates: start: 20110516
  9. BETAMETHASONE SODIUM PHOSPHATE [Suspect]
     Indication: INTENTIONAL SELF-INJURY
     Dosage: 0.5 MG -ORAL
     Route: 048
     Dates: start: 20110516
  10. CEFIXIME [Suspect]
     Dosage: 400MG-ORAL
     Route: 048
     Dates: start: 20110516
  11. MUSCORIL CAPSULE [Suspect]
     Indication: INTENTIONAL SELF-INJURY
     Dosage: 4MG-ORAL
     Route: 048
     Dates: start: 20110516
  12. NICOTINE [Suspect]
     Indication: INTENTIONAL SELF-INJURY
     Dates: start: 20110516
  13. IBUPROFEN [Suspect]
     Dosage: ORAL
     Route: 048
     Dates: start: 20110516

REACTIONS (1)
  - SELF INJURIOUS BEHAVIOUR [None]
